FAERS Safety Report 14646154 (Version 1)
Quarter: 2018Q1

REPORT INFORMATION
  Report Type: Spontaneous
  Country: US (occurrence: US)
  Receive Date: 20180316
  Receipt Date: 20180316
  Transmission Date: 20180509
  Serious: Yes (Other)
  Sender: FDA-Public Use
  Company Number: US-INGENUS PHARMACEUTICALS NJ, LLC-ING201803-000196

PATIENT
  Age: 42 Year
  Sex: Female

DRUGS (2)
  1. CARISOPRODOL, ASPIRIN AND CODEINE PHOSPHATE [Suspect]
     Active Substance: ASPIRIN\CARISOPRODOL\CODEINE PHOSPHATE
     Indication: BACK PAIN
     Dosage: 12 HEADACHE POWDERS
  2. IBUPROFEN. [Concomitant]
     Active Substance: IBUPROFEN
     Indication: BACK PAIN

REACTIONS (5)
  - Drug abuse [Unknown]
  - Syncope [Unknown]
  - Diarrhoea haemorrhagic [Unknown]
  - Ulcer [Unknown]
  - Haematemesis [Unknown]
